FAERS Safety Report 14291292 (Version 4)
Quarter: 2018Q3

REPORT INFORMATION
  Report Type: Spontaneous
  Country: FR (occurrence: FR)
  Receive Date: 20171215
  Receipt Date: 20180726
  Transmission Date: 20181010
  Serious: Yes (Disabling, Other)
  Sender: FDA-Public Use
  Company Number: FR-TEVA-2017-FR-829915

PATIENT
  Age: 37 Year
  Sex: Male
  Weight: 90 kg

DRUGS (31)
  1. DEROXAT [Suspect]
     Active Substance: PAROXETINE HYDROCHLORIDE
     Indication: POST-TRAUMATIC STRESS DISORDER
     Route: 065
     Dates: start: 20110201
  2. DOMPERIDONE [Concomitant]
     Active Substance: DOMPERIDONE
     Route: 065
     Dates: start: 20110531
  3. MIOREL (FRANCE) [Concomitant]
     Active Substance: METHOCARBAMOL
     Route: 065
     Dates: start: 20101213
  4. ULTRA LEVURE [Concomitant]
     Active Substance: SACCHAROMYCES CEREVISIAE
     Route: 065
     Dates: start: 20110531
  5. PANTOPRAZOLE [Concomitant]
     Active Substance: PANTOPRAZOLE
     Route: 065
     Dates: start: 20110303
  6. IXEL [Concomitant]
     Active Substance: MILNACIPRAN HYDROCHLORIDE
     Dates: start: 201103, end: 201105
  7. SPIFEN [Concomitant]
     Active Substance: IBUPROFEN
     Route: 065
     Dates: start: 20110531
  8. STRESAM [Concomitant]
     Active Substance: ETIFOXINE
     Dosage: UNK
     Dates: start: 20120327
  9. SEROPRAM [Concomitant]
     Dosage: UNK
     Dates: start: 20110318
  10. UVEDOSE [Concomitant]
     Active Substance: CHOLECALCIFEROL
     Dosage: UNK
     Dates: start: 20110219
  11. TETRAZEPAM [Suspect]
     Active Substance: TETRAZEPAM
     Indication: PRODUCT USED FOR UNKNOWN INDICATION
     Route: 065
     Dates: start: 20110705
  12. MIOREL (FRANCE) [Concomitant]
     Active Substance: METHOCARBAMOL
     Route: 065
     Dates: start: 20101210
  13. VALIUM [Concomitant]
     Active Substance: DIAZEPAM
     Dates: start: 20101115
  14. ATARAX [Concomitant]
     Active Substance: HYDROXYZINE HYDROCHLORIDE
     Dates: start: 2012
  15. LAROXYL [Concomitant]
     Active Substance: AMITRIPTYLINE HYDROCHLORIDE
     Dosage: UNK
     Dates: start: 20110219
  16. TETRAZEPAM [Concomitant]
     Active Substance: TETRAZEPAM
     Route: 065
     Dates: start: 20110705
  17. RIVOTRIL [Suspect]
     Active Substance: CLONAZEPAM
     Route: 048
     Dates: start: 20110718
  18. TRIMEBUTINE [Concomitant]
     Active Substance: TRIMEBUTINE
     Route: 065
     Dates: start: 20110531
  19. PRAXINOR [Concomitant]
     Dosage: UNK
     Dates: start: 20101127
  20. DIANTALVIC [Suspect]
     Active Substance: ACETAMINOPHEN\PROPOXYPHENE
     Indication: PRODUCT USED FOR UNKNOWN INDICATION
     Route: 065
     Dates: start: 20100606
  21. RIVOTRIL [Suspect]
     Active Substance: CLONAZEPAM
     Indication: NECK PAIN
     Route: 048
     Dates: start: 20110219
  22. DERINOX (FRANCE) [Concomitant]
     Route: 065
     Dates: start: 20110531
  23. TEMERIT [Concomitant]
     Active Substance: NEBIVOLOL
     Indication: TACHYCARDIA
     Route: 065
     Dates: start: 20110718
  24. SPIFEN [Concomitant]
     Active Substance: IBUPROFEN
     Route: 065
     Dates: start: 20110705
  25. DOMPERIDONE [Concomitant]
     Active Substance: DOMPERIDONE
     Route: 065
     Dates: start: 20110303
  26. DOLIPRANE [Concomitant]
     Active Substance: ACETAMINOPHEN
     Route: 065
     Dates: start: 20101213
  27. NUREFLEX [Concomitant]
     Active Substance: IBUPROFEN
     Route: 065
     Dates: start: 20101213
  28. CAPTODIAME [Concomitant]
     Dosage: UNK
     Dates: start: 20120620
  29. PAROXETINE BIOGARAN FILM?COATED TABLET [Suspect]
     Active Substance: PAROXETINE HYDROCHLORIDE
     Indication: POST-TRAUMATIC STRESS DISORDER
     Dosage: UNK
     Dates: start: 20110201
  30. TANGANIL [Concomitant]
     Active Substance: ACETYLLEUCINE
     Route: 065
     Dates: start: 20110303
  31. SOLUPRED [Concomitant]
     Dosage: UNK
     Dates: start: 20110726

REACTIONS (29)
  - Supraventricular extrasystoles [Not Recovered/Not Resolved]
  - Product use in unapproved indication [Unknown]
  - Palpitations [Unknown]
  - Vertigo [Unknown]
  - Irritability [Unknown]
  - Memory impairment [Recovered/Resolved]
  - Accommodation disorder [Recovered/Resolved]
  - Agoraphobia [Recovered/Resolved with Sequelae]
  - Pain in extremity [Unknown]
  - Affect lability [Unknown]
  - Hallucination, visual [Unknown]
  - Suicidal ideation [Recovered/Resolved]
  - Dyspnoea exertional [Unknown]
  - Hallucination, auditory [Recovered/Resolved]
  - Anxiety [Recovered/Resolved]
  - Off label use [Unknown]
  - Asthenia [Unknown]
  - Tinnitus [Recovered/Resolved]
  - Erectile dysfunction [Not Recovered/Not Resolved]
  - Iatrogenic injury [Unknown]
  - Tachycardia [Unknown]
  - Insomnia [Unknown]
  - Neurosis [Not Recovered/Not Resolved]
  - Panic attack [Recovered/Resolved]
  - Neck pain [Unknown]
  - Presyncope [Unknown]
  - Hypomania [Unknown]
  - Disturbance in attention [Unknown]
  - Photophobia [Recovered/Resolved]
